FAERS Safety Report 10983493 (Version 1)
Quarter: 2015Q2

REPORT INFORMATION
  Report Type: Spontaneous
  Country: GB (occurrence: GB)
  Receive Date: 20150403
  Receipt Date: 20150403
  Transmission Date: 20150821
  Serious: Yes (Disabling)
  Sender: FDA-Public Use
  Company Number: GB-PERRIGO-15GB003080

PATIENT
  Age: 74 Year
  Sex: Female
  Weight: 50.79 kg

DRUGS (1)
  1. PARACETAMOL 12063/0006 500 MG [Suspect]
     Active Substance: ACETAMINOPHEN
     Dosage: 2 DF, TID
     Route: 048
     Dates: start: 20150313, end: 20150313

REACTIONS (5)
  - Reaction to drug excipients [Unknown]
  - Diarrhoea [Not Recovered/Not Resolved]
  - Nausea [Not Recovered/Not Resolved]
  - Migraine [Not Recovered/Not Resolved]
  - Dizziness [Not Recovered/Not Resolved]

NARRATIVE: CASE EVENT DATE: 20150313
